FAERS Safety Report 21734481 (Version 3)
Quarter: 2023Q1

REPORT INFORMATION
  Report Type: Spontaneous
  Country: US (occurrence: US)
  Receive Date: 20221215
  Receipt Date: 20230125
  Transmission Date: 20230418
  Serious: Yes (Hospitalization, Other)
  Sender: FDA-Public Use
  Company Number: US-UROGEN PHARMA LTD.-2022-UGN-000142

PATIENT

DRUGS (9)
  1. JELMYTO [Suspect]
     Active Substance: MITOMYCIN
     Indication: Transitional cell cancer of the renal pelvis and ureter
     Dosage: 32 MILLIGRAM (8 CC), ONE TIME PER WEEK (INSTILLATION)
     Dates: start: 20220829, end: 20220829
  2. JELMYTO [Suspect]
     Active Substance: MITOMYCIN
     Dosage: 32 MILLIGRAM (8 CC), ONE TIME PER WEEK (INSTILLATION)
     Dates: start: 20220905, end: 20220905
  3. JELMYTO [Suspect]
     Active Substance: MITOMYCIN
     Dosage: 32 MILLIGRAM (8 CC), ONE TIME PER WEEK (INSTILLATION)
     Dates: start: 20220912, end: 20220912
  4. JELMYTO [Suspect]
     Active Substance: MITOMYCIN
     Dosage: 32 MILLIGRAM (8 CC), ONE TIME PER WEEK (INSTILLATION)
     Dates: start: 20220919, end: 20220919
  5. JELMYTO [Suspect]
     Active Substance: MITOMYCIN
     Dosage: 32 MILLIGRAM (8 CC), ONE TIME PER WEEK (INSTILLATION)
     Dates: start: 20220926, end: 20220926
  6. JELMYTO [Suspect]
     Active Substance: MITOMYCIN
     Dosage: 32 MILLIGRAM (8 CC), ONE TIME PER WEEK (INSTILLATION)
     Dates: start: 20221003, end: 20221003
  7. CRESTOR [Concomitant]
     Active Substance: ROSUVASTATIN CALCIUM
     Indication: Coronary artery disease
     Dosage: 5 MG
     Route: 048
  8. SYNTHROID [Concomitant]
     Active Substance: LEVOTHYROXINE SODIUM
     Indication: Hypothyroidism
     Dosage: 75 MCG
     Route: 048
  9. BENICAR [Concomitant]
     Active Substance: OLMESARTAN MEDOXOMIL
     Indication: Hypertension
     Dosage: 5 MG
     Route: 048

REACTIONS (1)
  - Renal abscess [Not Recovered/Not Resolved]

NARRATIVE: CASE EVENT DATE: 20221115
